FAERS Safety Report 24113330 (Version 1)
Quarter: 2024Q3

REPORT INFORMATION
  Report Type: Spontaneous
  Country: CN (occurrence: CN)
  Receive Date: 20240719
  Receipt Date: 20240719
  Transmission Date: 20241017
  Serious: Yes (Hospitalization)
  Sender: NOVITIUM PHARMA
  Company Number: CN-NOVITIUMPHARMA-2024CNNVP01299

PATIENT
  Age: 33 Year
  Sex: Female

DRUGS (1)
  1. LACOSAMIDE [Suspect]
     Active Substance: LACOSAMIDE
     Indication: Status epilepticus
     Dosage: ADMINISTERED IN 100ML OF NORMAL SALINE, INFUSED AT A RATE OF 200 ML/H OVER 30 MIN
     Route: 042

REACTIONS (1)
  - Unmasking of previously unidentified disease [Unknown]
